FAERS Safety Report 4660804-7 (Version None)
Quarter: 2005Q2

REPORT INFORMATION
  Report Type: 
  Country: None (occurrence: None)
  Receive Date: 20050511
  Receipt Date: 20050429
  Transmission Date: 20051028
  Serious: Yes (Hospitalization, Other)
  Sender: FDA-Public Use
  Company Number: USA-2003-0010852

PATIENT
  Sex: Female
  Weight: 54.4 kg

DRUGS (12)
  1. OXYCONTIN [Suspect]
     Indication: PAIN
     Dosage: SEE IMAGE, ORAL
     Route: 048
     Dates: end: 20030701
  2. FENTANYL [Suspect]
     Indication: PAIN
     Dosage: UD
  3. CELEXA [Concomitant]
  4. ZONEGRAN [Concomitant]
  5. ACTIQ [Concomitant]
  6. ZOFRAN [Concomitant]
  7. CECLOR [Concomitant]
  8. ZANTAC [Concomitant]
  9. TOPAMAX [Concomitant]
  10. GABITRIL [Concomitant]
  11. ULTRAM [Concomitant]
  12. PERCODAN [Concomitant]

REACTIONS (43)
  - ANGER [None]
  - ARTHRALGIA [None]
  - ASTHENIA [None]
  - BREATH SOUNDS DECREASED [None]
  - BURNING SENSATION [None]
  - BUTTOCK PAIN [None]
  - CHANGE OF BOWEL HABIT [None]
  - CHEST PAIN [None]
  - CHOKING SENSATION [None]
  - CONDITION AGGRAVATED [None]
  - CONSTIPATION [None]
  - CYSTITIS [None]
  - DECREASED APPETITE [None]
  - DEPRESSION [None]
  - DISTURBANCE IN ATTENTION [None]
  - DRUG DEPENDENCE [None]
  - DRUG INEFFECTIVE [None]
  - DRUG WITHDRAWAL SYNDROME [None]
  - DYSKINESIA [None]
  - DYSPNOEA [None]
  - FAECAL INCONTINENCE [None]
  - FALL [None]
  - HYPOAESTHESIA [None]
  - HYPOTENSION [None]
  - INFECTION [None]
  - LUNG INJURY [None]
  - MAJOR DEPRESSION [None]
  - MICTURITION URGENCY [None]
  - MOBILITY DECREASED [None]
  - MUSCLE SPASMS [None]
  - MUSCULOSKELETAL STIFFNESS [None]
  - NERVOUSNESS [None]
  - OEDEMA PERIPHERAL [None]
  - PAIN [None]
  - PAIN IN EXTREMITY [None]
  - PLEURITIC PAIN [None]
  - PNEUMOTHORAX [None]
  - POLLAKIURIA [None]
  - PROCEDURAL COMPLICATION [None]
  - SOMNOLENCE [None]
  - STRESS INCONTINENCE [None]
  - URINARY INCONTINENCE [None]
  - WEIGHT DECREASED [None]
